FAERS Safety Report 8456420-1 (Version None)
Quarter: 2012Q2

REPORT INFORMATION
  Report Type: 
  Country: None (occurrence: None)
  Receive Date: 20120621
  Receipt Date: 20120611
  Transmission Date: 20120825
  Serious: Yes (Death)
  Sender: FDA-Public Use
  Company Number: DE-ROCHE-1078020

PATIENT
  Sex: Female

DRUGS (13)
  1. PROCHLORPERAZINE [Concomitant]
  2. ERGOCALCIFEROL [Concomitant]
  3. ENOXAPARIN SODIUM [Concomitant]
  4. BELOC MITE [Concomitant]
  5. PASPERTIN [Concomitant]
  6. LEVOTHYROXINE SODIUM [Concomitant]
  7. ACTEMRA [Suspect]
     Indication: RHEUMATOID ARTHRITIS
     Dates: start: 20100501, end: 20100701
  8. CYCLOPHOSPHAMIDE [Suspect]
     Indication: RHEUMATOID ARTHRITIS
     Dates: start: 20111101, end: 20120116
  9. ALDACTONE [Concomitant]
  10. ANAKINRA [Suspect]
     Indication: RHEUMATOID ARTHRITIS
     Dates: end: 20120116
  11. PANTOPRAZOLE [Concomitant]
  12. PREDNISOLONE [Suspect]
     Indication: RHEUMATOID ARTHRITIS
  13. ENALAPRIL MALEATE [Concomitant]

REACTIONS (3)
  - GASTROINTESTINAL STOMA NECROSIS [None]
  - IMPAIRED HEALING [None]
  - DIVERTICULAR PERFORATION [None]
